APPROVED DRUG PRODUCT: ABACAVIR SULFATE
Active Ingredient: ABACAVIR SULFATE
Strength: EQ 300MG BASE
Dosage Form/Route: TABLET;ORAL
Application: A077844 | Product #001 | TE Code: AB
Applicant: AUROBINDO PHARMA LTD
Approved: Dec 17, 2012 | RLD: No | RS: No | Type: RX